FAERS Safety Report 21016014 (Version 3)
Quarter: 2022Q3

REPORT INFORMATION
  Report Type: Spontaneous
  Country: UY (occurrence: None)
  Receive Date: 20220628
  Receipt Date: 20220823
  Transmission Date: 20221027
  Serious: Yes (Death, Other)
  Sender: FDA-Public Use
  Company Number: UY-ROCHE-3121749

PATIENT
  Sex: Male

DRUGS (1)
  1. RISDIPLAM [Suspect]
     Active Substance: RISDIPLAM
     Indication: Spinal muscular atrophy
     Route: 065
     Dates: start: 20211224, end: 202206

REACTIONS (3)
  - Respiratory failure [Fatal]
  - Dermatitis infected [Unknown]
  - Rash [Unknown]

NARRATIVE: CASE EVENT DATE: 20220617
